FAERS Safety Report 13661915 (Version 2)
Quarter: 2017Q2

REPORT INFORMATION
  Report Type: Spontaneous
  Country: CL (occurrence: CL)
  Receive Date: 20170616
  Receipt Date: 20170626
  Transmission Date: 20170830
  Serious: Yes (Hospitalization)
  Sender: FDA-Public Use
  Company Number: CL-GE HEALTHCARE LIFE SCIENCES-2017CSU001685

PATIENT

DRUGS (4)
  1. PHYSIOLOGICAL SALINE SOLUTION [Concomitant]
     Active Substance: SODIUM CHLORIDE
     Dosage: 20 UNK, UNK
     Route: 042
     Dates: start: 20170516
  2. CERETEC [Suspect]
     Active Substance: TECHNETIUM TC-99M EXAMETAZIME
     Indication: DEPRESSION
     Dosage: 27 MCI, SINGLE
     Route: 042
     Dates: start: 20170516, end: 20170516
  3. TECHNETIUM TC 99M [Concomitant]
     Active Substance: TECHNETIUM TC-99M
  4. POTASSIUM PERCHLORATE [Concomitant]
     Active Substance: POTASSIUM PERCHLORATE
     Dosage: 750 MG, SINGLE
     Route: 048
     Dates: start: 20170516

REACTIONS (1)
  - Anaphylactic reaction [Recovered/Resolved]

NARRATIVE: CASE EVENT DATE: 20170516
